FAERS Safety Report 8415496-8 (Version None)
Quarter: 2012Q2

REPORT INFORMATION
  Report Type: 
  Country: None (occurrence: None)
  Receive Date: 20120606
  Receipt Date: 20120604
  Transmission Date: 20120825
  Serious: Yes (Death, Hospitalization)
  Sender: FDA-Public Use
  Company Number: PHHY2012FR047914

PATIENT
  Sex: Male

DRUGS (14)
  1. ALPRAZOLAM [Suspect]
     Dosage: 0.5 MG, QD
  2. GLUCOPHAGE [Suspect]
     Dosage: 500 MG, BID
  3. FENOFIBRATE [Suspect]
     Dosage: 200 MG, QD
  4. GLYBURIDE [Suspect]
     Dosage: 5 MG, BID
  5. VENLAFAXINE [Suspect]
     Dosage: 150 MG, QD
  6. QUETIAPINE [Suspect]
     Dosage: 50 MG, QD
     Dates: start: 20120416
  7. TRIMEPRAZINE TARTRATE [Suspect]
     Dosage: 25 DRP, QD
  8. ALFUZOSIN HCL [Suspect]
     Dosage: 10 MG, QD
  9. VALSARTAN  AND HYDROCHLOROTHIAZIDE [Suspect]
     Dosage: 1 DF (VALS 160 MG, HYDR 25 MG), QD
  10. ZOLPIDEM [Suspect]
     Dosage: 1 DF, QD
  11. ZYPREXA [Concomitant]
     Dates: end: 20120416
  12. OLANZAPINE [Suspect]
     Dosage: 5 MG, QD
     Dates: start: 20120417
  13. LERCANIDIPINE [Suspect]
     Dosage: 10 MG, QD
  14. ESOMEPRAZOLE [Suspect]
     Dosage: 20 MG, QD

REACTIONS (3)
  - SUDDEN DEATH [None]
  - DEPRESSION [None]
  - VOMITING [None]
